FAERS Safety Report 5612491-9 (Version None)
Quarter: 2008Q1

REPORT INFORMATION
  Report Type: 
  Country: None (occurrence: None)
  Receive Date: 20080204
  Receipt Date: 20080124
  Transmission Date: 20080703
  Serious: Yes (Other)
  Sender: FDA-Public Use
  Company Number: JP-ASTRAZENECA-2007AP08171

PATIENT
  Age: 25729 Day
  Sex: Female
  Weight: 48 kg

DRUGS (5)
  1. CRESTOR [Suspect]
     Indication: HYPERLIPIDAEMIA
     Route: 048
     Dates: start: 20071113, end: 20071126
  2. CYANOCOBALAMIN [Concomitant]
     Dosage: NUMBER OF SEPARATE DOSAGES UNKNOWN
     Route: 048
     Dates: start: 20071112, end: 20071115
  3. JUVELA N [Concomitant]
     Route: 048
     Dates: start: 20071112, end: 20071115
  4. FLOMOX [Concomitant]
     Indication: UPPER RESPIRATORY TRACT INFLAMMATION
     Route: 048
     Dates: start: 20071112, end: 20071115
  5. DASEN [Concomitant]
     Indication: UPPER RESPIRATORY TRACT INFLAMMATION
     Route: 048
     Dates: start: 20071112, end: 20071115

REACTIONS (2)
  - HAEMATURIA [None]
  - MALAISE [None]
